FAERS Safety Report 7530185-X (Version None)
Quarter: 2011Q2

REPORT INFORMATION
  Report Type: 
  Country: None (occurrence: None)
  Receive Date: 20110607
  Receipt Date: 20110530
  Transmission Date: 20111010
  Serious: Yes (Hospitalization)
  Sender: FDA-Public Use
  Company Number: PHHY2011IT46398

PATIENT
  Age: 78 Year
  Sex: Female

DRUGS (1)
  1. AMIODARONE HCL [Suspect]
     Indication: ATRIAL FIBRILLATION
     Dosage: 200 MG, UNK
     Dates: start: 20070601

REACTIONS (17)
  - LUNG INFILTRATION [None]
  - ACUTE PULMONARY OEDEMA [None]
  - TRICUSPID VALVE INCOMPETENCE [None]
  - PULMONARY TOXICITY [None]
  - RALES [None]
  - CARDIAC MURMUR [None]
  - MITRAL VALVE INCOMPETENCE [None]
  - DYSPNOEA [None]
  - CARDIOMEGALY [None]
  - VENTRICULAR HYPOKINESIA [None]
  - BLOOD PRESSURE DIASTOLIC DECREASED [None]
  - PNEUMONITIS [None]
  - ATRIOVENTRICULAR BLOCK FIRST DEGREE [None]
  - PLEURAL EFFUSION [None]
  - BREATH SOUNDS ABNORMAL [None]
  - LEFT VENTRICULAR HYPERTROPHY [None]
  - PYREXIA [None]
